FAERS Safety Report 5024963-9 (Version None)
Quarter: 2006Q2

REPORT INFORMATION
  Report Type: 
  Country: None (occurrence: None)
  Receive Date: 20060607
  Receipt Date: 20060522
  Transmission Date: 20061013
  Serious: Yes (Hospitalization, Other)
  Sender: FDA-Public Use
  Company Number: 8017025

PATIENT
  Age: 75 Year
  Sex: Female
  Weight: 100 kg

DRUGS (4)
  1. KEPPRA [Suspect]
     Indication: EPILEPSY
     Dosage: 500 MG 2/D PO
     Route: 048
     Dates: start: 20060403, end: 20060509
  2. MICROPAKINE [Concomitant]
  3. MOPRAL [Concomitant]
  4. CORDARONE [Concomitant]

REACTIONS (3)
  - AGRANULOCYTOSIS [None]
  - BRONCHITIS [None]
  - NEUTROPENIA [None]
